FAERS Safety Report 6738789-9 (Version None)
Quarter: 2010Q2

REPORT INFORMATION
  Report Type: 
  Country: None (occurrence: None)
  Receive Date: 20100524
  Receipt Date: 20100514
  Transmission Date: 20101027
  Serious: Yes (Life-Threatening, Other)
  Sender: FDA-Public Use
  Company Number: HQWYE896619OCT04

PATIENT
  Sex: Female

DRUGS (5)
  1. PREMPRO [Suspect]
  2. PREMARIN [Suspect]
  3. PROVERA [Suspect]
  4. COMBIPATCH [Suspect]
  5. ESTRATEST [Suspect]

REACTIONS (1)
  - CONTRALATERAL BREAST CANCER [None]
